FAERS Safety Report 24881677 (Version 1)
Quarter: 2025Q1

REPORT INFORMATION
  Report Type: Spontaneous
  Country: CA (occurrence: CA)
  Receive Date: 20250124
  Receipt Date: 20250124
  Transmission Date: 20250409
  Serious: Yes (Death, Hospitalization, Other)
  Sender: RYAN LABORATORIES LLC
  Company Number: CA-Ryan-000016

PATIENT
  Age: 9 Month
  Sex: Male

DRUGS (4)
  1. MIDAZOLAM [Suspect]
     Active Substance: MIDAZOLAM
     Indication: Status epilepticus
     Route: 065
  2. PREDNISOLONE [Concomitant]
     Active Substance: PREDNISOLONE
     Indication: Infantile spasms
     Dosage: 5 MG TID
     Route: 065
  3. VIGABATRIN [Suspect]
     Active Substance: VIGABATRIN
     Indication: Infantile spasms
     Dosage: INITIAL DOSE OF 50 MG/KG/DAY
     Route: 065
  4. VIGABATRIN [Suspect]
     Active Substance: VIGABATRIN
     Indication: Infantile spasms
     Dosage: TITRATED TO 130 MG/KG/DAY
     Route: 065

REACTIONS (10)
  - Toxicity to various agents [Fatal]
  - Epileptic encephalopathy [Fatal]
  - Multiple organ dysfunction syndrome [Fatal]
  - Coma [Fatal]
  - Anuria [Fatal]
  - Shock [Fatal]
  - Drug resistance [Fatal]
  - Status epilepticus [Unknown]
  - Haemodynamic instability [Unknown]
  - Hyperlipidaemia [Unknown]
